FAERS Safety Report 24094243 (Version 1)
Quarter: 2024Q3

REPORT INFORMATION
  Report Type: Spontaneous
  Country: IT (occurrence: DE)
  Receive Date: 20240716
  Receipt Date: 20240716
  Transmission Date: 20241017
  Serious: Yes (Other)
  Sender: ALKEM
  Company Number: DE-ALKEM LABORATORIES LIMITED-DE-ALKEM-2024-13694

PATIENT
  Age: 29 Year
  Sex: Male

DRUGS (27)
  1. CLOBAZAM [Suspect]
     Active Substance: CLOBAZAM
     Indication: Severe myoclonic epilepsy of infancy
     Dosage: 10 MILLIGRAM, QD
     Route: 065
  2. CLOBAZAM [Suspect]
     Active Substance: CLOBAZAM
     Dosage: UNK, PRN (1 AS NECESSARY)
     Route: 065
  3. CLOBAZAM [Suspect]
     Active Substance: CLOBAZAM
     Dosage: UNK (DOSE INCREASED)
     Route: 065
  4. LACOSAMIDE [Suspect]
     Active Substance: LACOSAMIDE
     Indication: Lennox-Gastaut syndrome
     Dosage: UNK
     Route: 065
  5. LACOSAMIDE [Suspect]
     Active Substance: LACOSAMIDE
     Indication: Off label use
  6. LEVETIRACETAM [Suspect]
     Active Substance: LEVETIRACETAM
     Indication: Off label use
     Dosage: UNK
     Route: 065
  7. LEVETIRACETAM [Suspect]
     Active Substance: LEVETIRACETAM
     Indication: Lennox-Gastaut syndrome
  8. OXCARBAZEPINE [Suspect]
     Active Substance: OXCARBAZEPINE
     Indication: Lennox-Gastaut syndrome
     Dosage: UNK
     Route: 065
  9. TOPIRAMATE [Suspect]
     Active Substance: TOPIRAMATE
     Indication: Lennox-Gastaut syndrome
     Dosage: UNK
     Route: 065
  10. BRIVARACETAM [Suspect]
     Active Substance: BRIVARACETAM
     Indication: Off label use
     Dosage: UNK
     Route: 065
  11. BRIVARACETAM [Suspect]
     Active Substance: BRIVARACETAM
     Indication: Lennox-Gastaut syndrome
  12. PERAMPANEL [Suspect]
     Active Substance: PERAMPANEL
     Indication: Lennox-Gastaut syndrome
     Dosage: UNK
     Route: 065
  13. UNSPECIFIED INGREDIENT [Suspect]
     Active Substance: UNSPECIFIED INGREDIENT
     Indication: Lennox-Gastaut syndrome
     Dosage: UNK
     Route: 065
  14. CANNABIDIOL [Suspect]
     Active Substance: CANNABIDIOL
     Indication: Severe myoclonic epilepsy of infancy
     Dosage: UNK, QD
     Route: 065
  15. CANNABIDIOL [Suspect]
     Active Substance: CANNABIDIOL
     Dosage: UNK
     Route: 065
  16. FENFLURAMINE HYDROCHLORIDE [Suspect]
     Active Substance: FENFLURAMINE HYDROCHLORIDE
     Indication: Seizure
     Dosage: 10 MILLILITER, QD
     Route: 065
  17. FENFLURAMINE HYDROCHLORIDE [Suspect]
     Active Substance: FENFLURAMINE HYDROCHLORIDE
     Dosage: 8 MILLILITER, QD
     Route: 065
  18. FENFLURAMINE HYDROCHLORIDE [Suspect]
     Active Substance: FENFLURAMINE HYDROCHLORIDE
     Dosage: 6 MILLILITER, QD
     Route: 065
  19. FENFLURAMINE HYDROCHLORIDE [Suspect]
     Active Substance: FENFLURAMINE HYDROCHLORIDE
     Dosage: UNK (DOSE INCREASED)
     Route: 065
  20. STIRIPENTOL [Suspect]
     Active Substance: STIRIPENTOL
     Indication: Severe myoclonic epilepsy of infancy
     Dosage: UNK, QD
     Route: 065
  21. VALPROATE [Suspect]
     Active Substance: VALPROIC ACID
     Indication: Severe myoclonic epilepsy of infancy
     Dosage: UNK, QD
     Route: 065
  22. VALPROATE [Suspect]
     Active Substance: VALPROIC ACID
     Indication: Lennox-Gastaut syndrome
     Dosage: 2000 MILLIGRAM, QD
     Route: 065
  23. ZONISAMIDE [Suspect]
     Active Substance: ZONISAMIDE
     Indication: Lennox-Gastaut syndrome
     Dosage: UNK
     Route: 065
  24. CLONAZEPAM [Concomitant]
     Active Substance: CLONAZEPAM
     Indication: Severe myoclonic epilepsy of infancy
     Dosage: UNK
     Route: 065
  25. PHENOBARBITAL [Concomitant]
     Active Substance: PHENOBARBITAL
     Indication: Severe myoclonic epilepsy of infancy
     Dosage: UNK
     Route: 065
  26. PHENOBARBITAL [Concomitant]
     Active Substance: PHENOBARBITAL
     Dosage: 100 MILLIGRAM, QD
     Route: 065
  27. RUFINAMIDE [Concomitant]
     Active Substance: RUFINAMIDE
     Indication: Severe myoclonic epilepsy of infancy
     Dosage: UNK, QD
     Route: 065

REACTIONS (4)
  - Seizure [Unknown]
  - Multiple-drug resistance [Unknown]
  - Weight decreased [Unknown]
  - Off label use [Unknown]
